FAERS Safety Report 18693352 (Version 1)
Quarter: 2021Q1

REPORT INFORMATION
  Report Type: Spontaneous
  Country: RU (occurrence: RU)
  Receive Date: 20210104
  Receipt Date: 20210104
  Transmission Date: 20210419
  Serious: Yes (Other)
  Sender: FDA-Public Use
  Company Number: RU-LUPIN PHARMACEUTICALS INC.-2020-08944

PATIENT
  Age: 35 Year
  Sex: Female

DRUGS (5)
  1. DELAMANID [Concomitant]
     Active Substance: DELAMANID
     Indication: TUBERCULOSIS
     Dosage: UNK
     Route: 065
  2. MOXIFLOXACIN HYDROCHLORIDE. [Suspect]
     Active Substance: MOXIFLOXACIN HYDROCHLORIDE
     Indication: TUBERCULOSIS
     Dosage: UNK
     Route: 065
  3. CAPREOMYCIN [Concomitant]
     Active Substance: CAPREOMYCIN
     Indication: TUBERCULOSIS
     Dosage: UNK
     Route: 065
  4. LEVOFLOXACIN. [Concomitant]
     Active Substance: LEVOFLOXACIN
     Indication: TUBERCULOSIS
     Dosage: UNK
     Route: 065
  5. LINEZOLID. [Concomitant]
     Active Substance: LINEZOLID
     Indication: TUBERCULOSIS
     Dosage: UNK
     Route: 065

REACTIONS (1)
  - Electrocardiogram QT prolonged [Recovered/Resolved]
